FAERS Safety Report 9228624 (Version 2)
Quarter: 2014Q1

REPORT INFORMATION
  Report Type: Spontaneous
  Country: US (occurrence: US)
  Receive Date: 20130412
  Receipt Date: 20140307
  Transmission Date: 20141002
  Serious: Yes (Other)
  Sender: FDA-Public Use
  Company Number: US-PFIZER INC-2013116192

PATIENT
  Age: 70 Year
  Sex: Female
  Weight: 63.49 kg

DRUGS (6)
  1. LYRICA [Suspect]
     Indication: FIBROMYALGIA
     Dosage: 100 MG, AS NEEDED
     Dates: start: 2000
  2. LYRICA [Suspect]
     Dosage: 100 MG, 3X/DAY
  3. VYTORIN [Concomitant]
     Indication: BLOOD CHOLESTEROL INCREASED
     Dosage: 10/20 MG, 1X/DAY
  4. AZO [Concomitant]
     Dosage: UNK
  5. CRANBERRY [Concomitant]
     Dosage: UNK
  6. VIT D [Concomitant]
     Dosage: UNK

REACTIONS (2)
  - Fall [Unknown]
  - Back injury [Unknown]
